FAERS Safety Report 9578206 (Version 1)
Quarter: 2013Q4

REPORT INFORMATION
  Report Type: Spontaneous
  Country: US (occurrence: US)
  Receive Date: 20131001
  Receipt Date: 20131001
  Transmission Date: 20140711
  Serious: No
  Sender: FDA-Public Use
  Company Number: US-AMGEN-USASP2013012475

PATIENT
  Age: 39 Year
  Sex: Female

DRUGS (7)
  1. ENBREL [Suspect]
     Indication: RHEUMATOID ARTHRITIS
     Dosage: 50 MG, EVERY WEEK
     Route: 058
  2. LEXAPRO [Concomitant]
     Dosage: 5 MG, UNK
  3. CALAN                              /00014302/ [Concomitant]
     Dosage: 180 MG, UNK
  4. BENADRYL                           /00000402/ [Concomitant]
     Dosage: 25 MG, UNK
  5. TRAMADOL HCL [Concomitant]
     Dosage: 50 MG, UNK
  6. LOSARTAN POTASSIUM [Concomitant]
     Dosage: 50 MG, UNK
  7. ARAVA [Concomitant]
     Dosage: 10 MG, UNK

REACTIONS (4)
  - Throat irritation [Recovering/Resolving]
  - Pharyngeal oedema [Recovering/Resolving]
  - Injection site urticaria [Unknown]
  - Injection site pruritus [Unknown]
